FAERS Safety Report 8071208-1 (Version None)
Quarter: 2012Q1

REPORT INFORMATION
  Report Type: 
  Country: None (occurrence: None)
  Receive Date: 20120125
  Receipt Date: 20120120
  Transmission Date: 20120608
  Serious: Yes (Death)
  Sender: FDA-Public Use
  Company Number: PHEH2012US001954

PATIENT
  Sex: Female

DRUGS (1)
  1. NEORAL [Suspect]
     Indication: RENAL TRANSPLANT
     Dosage: 25 MG, 2 BID
     Route: 048
     Dates: start: 20050101, end: 20110101

REACTIONS (1)
  - DEATH [None]
